FAERS Safety Report 11761356 (Version 1)
Quarter: 2015Q4

REPORT INFORMATION
  Report Type: Spontaneous
  Country: CN (occurrence: CN)
  Receive Date: 20151120
  Receipt Date: 20151120
  Transmission Date: 20160304
  Serious: Yes (Death)
  Sender: FDA-Public Use
  Company Number: CN-CELGENE-CHN-2015111805

PATIENT

DRUGS (1)
  1. ABRAXANE [Suspect]
     Active Substance: PACLITAXEL
     Indication: PANCREATIC CARCINOMA
     Dosage: 100 MILLIGRAM/SQ. METER
     Route: 041

REACTIONS (9)
  - Alopecia [Unknown]
  - Hepatic function abnormal [Unknown]
  - Arthralgia [Unknown]
  - Neutropenia [Unknown]
  - Vomiting [Unknown]
  - Leukopenia [Unknown]
  - Myalgia [Unknown]
  - Nausea [Unknown]
  - Disease progression [Fatal]
